FAERS Safety Report 18730557 (Version 2)
Quarter: 2021Q1

REPORT INFORMATION
  Report Type: Spontaneous
  Country: US (occurrence: US)
  Receive Date: 20210112
  Receipt Date: 20210118
  Transmission Date: 20210419
  Serious: Yes (Other)
  Sender: FDA-Public Use
  Company Number: US-PFIZER INC-2021011439

PATIENT
  Age: 65 Year
  Sex: Male

DRUGS (1)
  1. EPINEPHRINE. [Suspect]
     Active Substance: EPINEPHRINE
     Indication: ACUTE CORONARY SYNDROME
     Dosage: UNK

REACTIONS (3)
  - Acute coronary syndrome [Unknown]
  - Drug hypersensitivity [Unknown]
  - Condition aggravated [Unknown]
